FAERS Safety Report 6063174-5 (Version None)
Quarter: 2009Q1

REPORT INFORMATION
  Report Type: 
  Country: None (occurrence: None)
  Receive Date: 20090203
  Receipt Date: 20090121
  Transmission Date: 20090719
  Serious: Yes (Other)
  Sender: FDA-Public Use
  Company Number: US-ELI_LILLY_AND_COMPANY-US200901003542

PATIENT
  Sex: Female

DRUGS (2)
  1. FORTEO [Suspect]
     Indication: OSTEOPOROSIS
     Dates: start: 20071201, end: 20090118
  2. FORTEO [Suspect]
     Dates: start: 20090121

REACTIONS (3)
  - BREAST CANCER IN SITU [None]
  - FEELING ABNORMAL [None]
  - PAIN [None]
